FAERS Safety Report 9141525 (Version 1)
Quarter: 2013Q1

REPORT INFORMATION
  Report Type: Spontaneous
  Country: US (occurrence: US)
  Receive Date: 20130305
  Receipt Date: 20130305
  Transmission Date: 20140127
  Serious: No
  Sender: FDA-Public Use
  Company Number: US-AMGEN-USASP2013008587

PATIENT
  Age: 7 Year
  Sex: Female

DRUGS (2)
  1. ENBREL [Suspect]
     Indication: JUVENILE IDIOPATHIC ARTHRITIS
     Dosage: 25 MG, QWK
     Dates: start: 2009
  2. METHOTREXATE [Concomitant]
     Dosage: UNK
     Dates: end: 2009

REACTIONS (5)
  - Injection site mass [Not Recovered/Not Resolved]
  - Arthritis [Not Recovered/Not Resolved]
  - Joint destruction [Unknown]
  - Bone disorder [Unknown]
  - Injection site erythema [Not Recovered/Not Resolved]
